FAERS Safety Report 10039571 (Version 1)
Quarter: 2014Q1

REPORT INFORMATION
  Report Type: Spontaneous
  Country: US (occurrence: None)
  Receive Date: 20140306
  Receipt Date: 20140306
  Transmission Date: 20141002
  Serious: Yes (Hospitalization, Other)
  Sender: FDA-Public Use
  Company Number: 163-21880-12022705

PATIENT
  Age: 73 Year
  Sex: Male
  Weight: 91 kg

DRUGS (32)
  1. REVLIMID [Suspect]
     Indication: MYELODYSPLASTIC SYNDROME
     Route: 048
     Dates: start: 20120103
  2. DEXAMETHASONE [Suspect]
     Indication: MYELODYSPLASTIC SYNDROME
     Route: 048
     Dates: start: 20120103
  3. PBRCS (RED BLOOD CELLS, CONCENTRATED) [Concomitant]
  4. MORPHINE [Concomitant]
  5. GLYBURIDE (GLIBENCLAMIDE) [Concomitant]
  6. COMPAZINE (PROCHLORPERAZINE EDISYLATE) [Concomitant]
  7. ACETYLSALICYLIC ACID [Concomitant]
  8. HYDROCODONE [Concomitant]
  9. ZOMETA (ZOLEDRONIC ACID) [Concomitant]
  10. NEUPOGEN (FILGRASTIM) [Concomitant]
  11. KETODOLAC (OTHER ANALGESICS AND ANTIPYRETICS) [Concomitant]
  12. ZOFRAN (ONDANSETRON HYDROCHLORIDE) [Concomitant]
  13. ROCEPHIN (CEFTRIAXONE SODIUM) [Concomitant]
  14. DOPAMINE [Concomitant]
  15. HEPARIN [Concomitant]
  16. NEXIUM (ESOMEPRAZOLE) [Concomitant]
  17. ALBUTEROL/ IPRATROPIUM (SALBUTAMOL W/ IPRATROPIUM) [Concomitant]
  18. GUAIFENESIN XR (GUAIFENESIN) [Concomitant]
  19. BENZONATATE (BENZONATATE) [Concomitant]
  20. ROBITUSSIN DM (TUSSIN DM) [Concomitant]
  21. PREDNISONE TAPER (PREDNISONE) [Concomitant]
  22. MEROPENEM (MEROPENEM) [Concomitant]
  23. LEVAQUIN (LEVOFLOXACIN) [Concomitant]
  24. ACTIGALL (URSODEOXYCHOLIC ACID) [Concomitant]
  25. PLERIXAFOR (PLERIXAFOR) [Concomitant]
  26. COLACE (DOCUSATE SODIUM) [Concomitant]
  27. FENTANYL [Concomitant]
  28. ONE DAY MENS MULTIVITAMINS (ONE A DAY MENS) [Concomitant]
  29. OXYCODONE [Concomitant]
  30. ALEVE (NAPROXEN SODIUM) [Concomitant]
  31. ACYCLOVIR (ACICLOVIR) (ACICLOVIR) [Concomitant]
  32. VITAMIN B12 (CYANOCOBALAMIN) [Concomitant]

REACTIONS (3)
  - Pneumonia [None]
  - Renal failure acute [None]
  - Pyrexia [None]
